FAERS Safety Report 8011050-0 (Version None)
Quarter: 2011Q4

REPORT INFORMATION
  Report Type: 
  Country: None (occurrence: None)
  Receive Date: 20111228
  Receipt Date: 20111216
  Transmission Date: 20120403
  Serious: Yes (Other)
  Sender: FDA-Public Use
  Company Number: US-ELI_LILLY_AND_COMPANY-US201110004773

PATIENT
  Age: 67 Year
  Sex: Female

DRUGS (4)
  1. CYMBALTA [Suspect]
     Indication: DEPRESSION
     Dosage: 30 MG, QD
  2. CYMBALTA [Suspect]
     Dosage: 60 MG, QD
  3. LANTUS [Concomitant]
     Indication: DIABETES MELLITUS
     Dosage: 55 ML, QD
  4. DILAUDID [Concomitant]
     Indication: NECK PAIN

REACTIONS (4)
  - EYE LASER SURGERY [None]
  - CATARACT [None]
  - EYE DISORDER [None]
  - NODULE [None]
